FAERS Safety Report 5879720-8 (Version None)
Quarter: 2008Q3

REPORT INFORMATION
  Report Type: 
  Country: None (occurrence: None)
  Receive Date: 20080912
  Receipt Date: 20080901
  Transmission Date: 20090109
  Serious: Yes (Hospitalization)
  Sender: FDA-Public Use
  Company Number: JP-MERCK-0808USA02280

PATIENT
  Age: 76 Year
  Sex: Female

DRUGS (15)
  1. FOSAMAX [Suspect]
     Indication: OSTEOPOROSIS
     Route: 048
     Dates: start: 20080727, end: 20080803
  2. FOSAMAX [Suspect]
     Indication: SPINAL OSTEOARTHRITIS
     Route: 048
     Dates: start: 20080727, end: 20080803
  3. SELBEX [Concomitant]
     Route: 048
     Dates: start: 20080723, end: 20080803
  4. CELECOX [Suspect]
     Indication: SPINAL OSTEOARTHRITIS
     Route: 048
     Dates: start: 20080723, end: 20080803
  5. CELECOX [Suspect]
     Indication: OSTEOARTHRITIS
     Route: 048
     Dates: start: 20080723, end: 20080803
  6. VOLTAREN [Suspect]
     Indication: OSTEOARTHRITIS
     Route: 054
     Dates: start: 20080728, end: 20080803
  7. VOLTAREN [Suspect]
     Indication: SPINAL OSTEOARTHRITIS
     Route: 054
     Dates: start: 20080728, end: 20080803
  8. UNIPHYL [Concomitant]
     Indication: ASTHMA
     Route: 048
  9. MUCODYNE [Concomitant]
     Indication: ASTHMA
     Route: 048
  10. TALION [Concomitant]
     Indication: ASTHMA
     Route: 048
  11. ADOAIR [Concomitant]
     Indication: ASTHMA
  12. HOKUNALIN [Concomitant]
     Indication: ASTHMA
     Route: 061
  13. ISOPIT [Concomitant]
     Indication: ANGINA PECTORIS
     Route: 061
  14. VOGLIBOSE [Concomitant]
     Indication: DIABETES MELLITUS
     Route: 048
  15. ASIAN GINSENG [Concomitant]
     Indication: DIABETES MELLITUS
     Route: 048

REACTIONS (1)
  - DRUG ERUPTION [None]
